FAERS Safety Report 24267568 (Version 1)
Quarter: 2024Q3

REPORT INFORMATION
  Report Type: Spontaneous
  Country: US (occurrence: None)
  Receive Date: 20240829
  Receipt Date: 20240829
  Transmission Date: 20241017
  Serious: No
  Sender: Public
  Company Number: None

PATIENT
  Age: 67 Year
  Sex: Male
  Weight: 64.8 kg

DRUGS (1)
  1. XTANDI [Suspect]
     Active Substance: ENZALUTAMIDE
     Indication: Prostate cancer
     Dosage: 160 MG DAILY ORAL
     Route: 048
     Dates: start: 20240708

REACTIONS (3)
  - Hot flush [None]
  - Blood sodium decreased [None]
  - Blood chloride decreased [None]

NARRATIVE: CASE EVENT DATE: 20240828
